FAERS Safety Report 9861857 (Version 1)
Quarter: 2014Q1

REPORT INFORMATION
  Report Type: Spontaneous
  Country: US (occurrence: US)
  Receive Date: 20140203
  Receipt Date: 20140203
  Transmission Date: 20141002
  Serious: No
  Sender: FDA-Public Use
  Company Number: US-PFIZER INC-2014027958

PATIENT
  Age: 41 Year
  Sex: Female
  Weight: 68.03 kg

DRUGS (6)
  1. PROTONIX [Suspect]
     Indication: GASTROOESOPHAGEAL REFLUX DISEASE
     Dosage: 40 MG, 1X/DAY
     Route: 048
     Dates: start: 20131101
  2. PROTONIX [Suspect]
     Indication: GASTRIC DISORDER
  3. ANDROCUR [Concomitant]
     Dosage: UNK
  4. BUSPAR [Concomitant]
     Dosage: UNK
  5. FLEXERIL [Concomitant]
     Dosage: UNK
  6. DEPAKOTE [Concomitant]
     Dosage: UNK

REACTIONS (1)
  - Drug screen positive [Unknown]
